FAERS Safety Report 14746373 (Version 1)
Quarter: 2018Q2

REPORT INFORMATION
  Report Type: Spontaneous
  Country: US (occurrence: US)
  Receive Date: 20180411
  Receipt Date: 20180411
  Transmission Date: 20180711
  Serious: No
  Sender: FDA-Public Use
  Company Number: US-NOVOPROD-588386

PATIENT
  Sex: Female

DRUGS (2)
  1. FIASP 3ML PDS290 [Suspect]
     Active Substance: INSULIN ASPART
     Dosage: CORRECTION DOSE OF 2 UNITS
     Route: 058
     Dates: start: 20180227
  2. FIASP 3ML PDS290 [Suspect]
     Active Substance: INSULIN ASPART
     Indication: TYPE 1 DIABETES MELLITUS
     Dosage: UNK
     Route: 058
     Dates: start: 201802

REACTIONS (2)
  - Blood glucose increased [Unknown]
  - Drug ineffective [Unknown]

NARRATIVE: CASE EVENT DATE: 201802
